FAERS Safety Report 7823663-7 (Version None)
Quarter: 2011Q4

REPORT INFORMATION
  Report Type: 
  Country: None (occurrence: None)
  Receive Date: 20111019
  Receipt Date: 20111019
  Transmission Date: 20120403
  Serious: Yes (Hospitalization)
  Sender: FDA-Public Use
  Company Number: None

PATIENT
  Sex: Female
  Weight: 52.163 kg

DRUGS (1)
  1. LEVAQUIN [Suspect]
     Indication: SINUSITIS
     Dosage: ONCE A DAY
     Dates: start: 20110419, end: 20110430

REACTIONS (21)
  - MUSCLE TWITCHING [None]
  - JOINT CREPITATION [None]
  - FOOD INTOLERANCE [None]
  - RASH [None]
  - ARTHRALGIA [None]
  - SKIN INJURY [None]
  - PANIC ATTACK [None]
  - TENDONITIS [None]
  - TINNITUS [None]
  - PAIN [None]
  - SKIN DISORDER [None]
  - PALPITATIONS [None]
  - NEUROPATHY PERIPHERAL [None]
  - MUSCULAR WEAKNESS [None]
  - DEPRESSION [None]
  - TREMOR [None]
  - CONVULSION [None]
  - VISION BLURRED [None]
  - TENDON INJURY [None]
  - ANXIETY [None]
  - PRODUCT QUALITY ISSUE [None]
